FAERS Safety Report 10081646 (Version 1)
Quarter: 2014Q2

REPORT INFORMATION
  Report Type: Spontaneous
  Country: US (occurrence: US)
  Receive Date: 20140416
  Receipt Date: 20140416
  Transmission Date: 20141212
  Serious: No
  Sender: FDA-Public Use
  Company Number: US-009507513-1404USA003682

PATIENT
  Age: 24 Year
  Sex: Male

DRUGS (6)
  1. PROPECIA [Suspect]
     Indication: ANDROGENETIC ALOPECIA
     Dosage: ONE TABLET DAILY
     Route: 048
     Dates: start: 200803, end: 201003
  2. FINASTERIDE [Suspect]
     Indication: ANDROGENETIC ALOPECIA
     Dosage: UNK
     Route: 048
  3. VITAMIN B (UNSPECIFIED) [Concomitant]
     Dosage: UNK
  4. VITAMIN C [Concomitant]
     Dosage: UNK
  5. VITAMIN D (UNSPECIFIED) [Concomitant]
     Dosage: UNK
  6. ZINC (UNSPECIFIED) [Concomitant]
     Dosage: UNK

REACTIONS (4)
  - Erectile dysfunction [Not Recovered/Not Resolved]
  - Fatigue [Not Recovered/Not Resolved]
  - Feeling abnormal [Not Recovered/Not Resolved]
  - Depression [Not Recovered/Not Resolved]
